FAERS Safety Report 20580341 (Version 1)
Quarter: 2022Q1

REPORT INFORMATION
  Report Type: Spontaneous
  Country: PR (occurrence: PR)
  Receive Date: 20220311
  Receipt Date: 20220311
  Transmission Date: 20220424
  Serious: Yes (Hospitalization)
  Sender: FDA-Public Use
  Company Number: PR-BIOVITRUM-2022PR03403

PATIENT
  Age: 0 Year
  Sex: Female

DRUGS (1)
  1. SYNAGIS [Suspect]
     Active Substance: PALIVIZUMAB
     Indication: Premature baby
     Dosage: 74.3 (UNIT NOT SPECIFIED)
     Route: 030
     Dates: start: 20220127

REACTIONS (1)
  - Diarrhoea infectious [Unknown]

NARRATIVE: CASE EVENT DATE: 20220303
